FAERS Safety Report 26096646 (Version 1)
Quarter: 2025Q4

REPORT INFORMATION
  Report Type: Spontaneous
  Country: EU (occurrence: EU)
  Receive Date: 20251127
  Receipt Date: 20251127
  Transmission Date: 20260117
  Serious: Yes (Other)
  Sender: AUROBINDO
  Company Number: EU-AstraZeneca-CH-00966884A

PATIENT
  Age: 53 Year
  Sex: Female
  Weight: 57 kg

DRUGS (6)
  1. FULVESTRANT [Suspect]
     Active Substance: FULVESTRANT
     Indication: Hormone receptor positive breast cancer
     Dosage: 1 MONTH
  2. FULVESTRANT [Suspect]
     Active Substance: FULVESTRANT
     Indication: Human epidermal growth factor receptor negative
  3. FULVESTRANT [Suspect]
     Active Substance: FULVESTRANT
     Indication: Breast cancer
  4. TRUQAP [Suspect]
     Active Substance: CAPIVASERTIB
     Indication: Hormone receptor positive breast cancer
     Dosage: 1 UNK
  5. TRUQAP [Suspect]
     Active Substance: CAPIVASERTIB
     Indication: Human epidermal growth factor receptor negative
  6. TRUQAP [Suspect]
     Active Substance: CAPIVASERTIB
     Indication: Breast cancer

REACTIONS (1)
  - Hypertransaminasaemia [Unknown]
